FAERS Safety Report 23628372 (Version 2)
Quarter: 2024Q1

REPORT INFORMATION
  Report Type: Report from Study
  Country: AR (occurrence: AR)
  Receive Date: 20240313
  Receipt Date: 20240315
  Transmission Date: 20240410
  Serious: Yes (Life-Threatening)
  Sender: FDA-Public Use
  Company Number: AR-002147023-NVSC2024AR004188

PATIENT
  Age: 70 Year
  Sex: Female

DRUGS (5)
  1. KISQALI [Suspect]
     Active Substance: RIBOCICLIB
     Indication: Breast cancer metastatic
     Dosage: 800 MG, 2 TAB , 21D
     Route: 048
     Dates: start: 20231229
  2. KISQALI [Suspect]
     Active Substance: RIBOCICLIB
     Dosage: 600 MG, QD
     Route: 048
     Dates: start: 20231229
  3. KISQALI [Suspect]
     Active Substance: RIBOCICLIB
     Dosage: 400 MG, QD
     Route: 048
  4. KISQALI [Suspect]
     Active Substance: RIBOCICLIB
     Dosage: 1 DOSAGE FORM, Q12H
     Route: 065
  5. KISQALI [Suspect]
     Active Substance: RIBOCICLIB
     Dosage: 200 MG, BID
     Route: 048

REACTIONS (16)
  - Near death experience [Unknown]
  - Pyrexia [Unknown]
  - Retching [Unknown]
  - Chapped lips [Unknown]
  - Pain in extremity [Unknown]
  - Musculoskeletal pain [Unknown]
  - Nasopharyngitis [Unknown]
  - Malaise [Recovering/Resolving]
  - Asthenia [Unknown]
  - Feeling abnormal [Unknown]
  - Headache [Unknown]
  - Bone pain [Unknown]
  - Dehydration [Unknown]
  - Drug intolerance [Unknown]
  - Influenza like illness [Unknown]
  - Off label use [Unknown]

NARRATIVE: CASE EVENT DATE: 20231201
